FAERS Safety Report 9221909 (Version 1)
Quarter: 2013Q1

REPORT INFORMATION
  Report Type: Spontaneous
  Country: US (occurrence: US)
  Receive Date: 20120907
  Receipt Date: 20120907
  Transmission Date: 20140127
  Serious: No
  Sender: FDA-Public Use
  Company Number: TH-2012-00195

PATIENT
  Age: 49 Year
  Sex: Male
  Weight: 113 kg

DRUGS (7)
  1. EGRIFTA [Suspect]
     Indication: LIPODYSTROPHY ACQUIRED
     Dosage: INAPPROPRIATE SCHEDULE OF DRUG ADMINISTRATION.
  2. INTELLENTE [Concomitant]
  3. PREVACID (LANSOPRAZOLE) [Concomitant]
  4. ACYCLOVIR (ACICLOVIR) (ACICLOVIR) [Concomitant]
  5. METFORMIN (METFORMIN) [Concomitant]
  6. LIPITOR (ATORVASTATIN CALCIUM) [Concomitant]
  7. WELLBUTRIN (BUPROPION) [Concomitant]

REACTIONS (5)
  - Haematospermia [None]
  - Sinusitis [None]
  - Carpal tunnel syndrome [None]
  - Inappropriate schedule of drug administration [None]
  - Condition aggravated [None]
